FAERS Safety Report 20901757 (Version 1)
Quarter: 2022Q2

REPORT INFORMATION
  Report Type: Report from Study
  Country: CA (occurrence: CA)
  Receive Date: 20220601
  Receipt Date: 20220601
  Transmission Date: 20220721
  Serious: Yes (Other)
  Sender: FDA-Public Use
  Company Number: CA-ABBVIE-22K-028-4416277-00

PATIENT
  Sex: Female

DRUGS (1)
  1. HUMIRA [Suspect]
     Active Substance: ADALIMUMAB
     Indication: Colitis ulcerative
     Route: 058
     Dates: start: 20181203

REACTIONS (10)
  - Loss of consciousness [Unknown]
  - Electrocardiogram abnormal [Unknown]
  - Head injury [Unknown]
  - Nasal injury [Unknown]
  - Frequent bowel movements [Unknown]
  - Fall [Unknown]
  - Gastrointestinal pain [Unknown]
  - Nasopharyngitis [Unknown]
  - Presyncope [Unknown]
  - Dehydration [Unknown]
